FAERS Safety Report 9349532 (Version 9)
Quarter: 2014Q3

REPORT INFORMATION
  Report Type: Spontaneous
  Country: US (occurrence: US)
  Receive Date: 20130614
  Receipt Date: 20140902
  Transmission Date: 20150326
  Serious: Yes (Hospitalization)
  Sender: FDA-Public Use
  Company Number: US-GLAXOSMITHKLINE-A1027160A

PATIENT
  Age: 60 Year
  Sex: Female
  Weight: 73.7 kg

DRUGS (4)
  1. COUMADIN [Concomitant]
     Active Substance: WARFARIN SODIUM
  2. FLOLAN [Suspect]
     Active Substance: EPOPROSTENOL SODIUM
     Indication: PULMONARY ARTERIAL HYPERTENSION
     Dosage: 17.5NGKM CONTINUOUS
     Route: 065
     Dates: start: 20070223
  3. REVATIO [Concomitant]
     Active Substance: SILDENAFIL CITRATE
  4. WARFARIN [Concomitant]
     Active Substance: WARFARIN

REACTIONS (7)
  - Arteriovenous fistula [Recovered/Resolved]
  - Limb operation [Unknown]
  - Thermal burn [Unknown]
  - Physiotherapy [Not Recovered/Not Resolved]
  - Staphylococcal infection [Unknown]
  - Limb injury [Unknown]
  - Catheterisation cardiac [Recovered/Resolved]

NARRATIVE: CASE EVENT DATE: 20130607
